FAERS Safety Report 7862810-8 (Version None)
Quarter: 2011Q4

REPORT INFORMATION
  Report Type: 
  Country: None (occurrence: None)
  Receive Date: 20111027
  Receipt Date: 20101115
  Transmission Date: 20120403
  Serious: No
  Sender: FDA-Public Use
  Company Number: US-AMGEN-USASP2010004980

PATIENT
  Age: 64 Year

DRUGS (4)
  1. IRON [Concomitant]
     Dosage: 325 MG, UNK
  2. ENBREL [Suspect]
     Dosage: 50 MG, QWK
  3. PRILOSEC [Concomitant]
     Dosage: 20 MG, UNK
  4. ALEVE [Concomitant]
     Dosage: 220 MG, UNK

REACTIONS (3)
  - URINARY INCONTINENCE [None]
  - RASH [None]
  - BLADDER DISORDER [None]
